FAERS Safety Report 11872754 (Version 6)
Quarter: 2017Q4

REPORT INFORMATION
  Report Type: Spontaneous
  Country: US (occurrence: US)
  Receive Date: 20151228
  Receipt Date: 20171101
  Transmission Date: 20180320
  Serious: Yes (Hospitalization)
  Sender: FDA-Public Use
  Company Number: US-PFIZER INC-2015422276

PATIENT
  Age: 58 Year
  Sex: Female

DRUGS (4)
  1. LETROZOLE. [Suspect]
     Active Substance: LETROZOLE
     Dosage: UNK
  2. IBRANCE [Suspect]
     Active Substance: PALBOCICLIB
     Indication: BREAST CANCER
     Dosage: 125 MG, 1 CAPSULE, DAILY CYCLIC (DAILY FOR 21 DAYS WITH 7 DAYS OFF)
     Route: 048
     Dates: start: 20150623
  3. EXEMESTANE. [Concomitant]
     Active Substance: EXEMESTANE
     Dosage: UNK
     Dates: start: 2015
  4. FENTANYL. [Concomitant]
     Active Substance: FENTANYL
     Dosage: UNK

REACTIONS (9)
  - Pain [Unknown]
  - Bone pain [Recovered/Resolved]
  - Arthralgia [Recovered/Resolved]
  - Diarrhoea [Recovered/Resolved]
  - Panic attack [Unknown]
  - Myalgia [Recovered/Resolved]
  - Anxiety [Unknown]
  - Vomiting [Recovered/Resolved]
  - Influenza like illness [Recovered/Resolved]
